FAERS Safety Report 8548558-5 (Version None)
Quarter: 2012Q3

REPORT INFORMATION
  Report Type: 
  Country: None (occurrence: None)
  Receive Date: 20120730
  Receipt Date: 20120718
  Transmission Date: 20120928
  Serious: Yes (Hospitalization, Other)
  Sender: FDA-Public Use
  Company Number: US-NOVOPROD-356305

PATIENT
  Age: 72 Year
  Sex: Male

DRUGS (3)
  1. NOVOLOG [Suspect]
     Indication: DIABETES MELLITUS
     Dosage: UNKNOWN
     Route: 058
  2. LANTUS [Suspect]
     Dosage: 40 UNITS QD
     Route: 058
     Dates: start: 20120101
  3. LANTUS [Suspect]
     Indication: DIABETES MELLITUS
     Dosage: 50 UNITS QD IN MORNING
     Route: 058
     Dates: end: 20120101

REACTIONS (4)
  - BLOOD GLUCOSE DECREASED [None]
  - LACERATION [None]
  - LOSS OF CONSCIOUSNESS [None]
  - ROAD TRAFFIC ACCIDENT [None]
